FAERS Safety Report 18774080 (Version 1)
Quarter: 2021Q1

REPORT INFORMATION
  Report Type: Spontaneous
  Country: NL (occurrence: NL)
  Receive Date: 20210122
  Receipt Date: 20210122
  Transmission Date: 20210419
  Serious: Yes (Hospitalization)
  Sender: FDA-Public Use
  Company Number: NL-TEVA-2021-NL-1871160

PATIENT
  Age: 71 Year
  Sex: Male
  Weight: 82 kg

DRUGS (4)
  1. PREDNISOLON TABLET 30MG / BRAND NAME NOT SPECIFIED [Concomitant]
     Active Substance: PREDNISOLONE
     Dosage: 30 MG (MILLIGRAM),THERAPY START DATE AND END DATE: ASKED BUT UNKNOWN
  2. CLARITROMYCINE TABLET MGA 500MG / BRAND NAME NOT SPECIFIED [Suspect]
     Active Substance: CLARITHROMYCIN
     Indication: MALAISE
     Dosage: 500 MG (MILLIGRAM),
     Route: 065
     Dates: start: 20201221, end: 20201226
  3. CLARITROMYCINE TABLET MGA 500MG / BRAND NAME NOT SPECIFIED [Suspect]
     Active Substance: CLARITHROMYCIN
     Indication: DYSPNOEA
  4. CLARITROMYCINE TABLET MGA 500MG / BRAND NAME NOT SPECIFIED [Suspect]
     Active Substance: CLARITHROMYCIN
     Indication: CARDIAC DISORDER

REACTIONS (2)
  - Epilepsy [Recovering/Resolving]
  - Loss of consciousness [Recovering/Resolving]

NARRATIVE: CASE EVENT DATE: 20201226
